FAERS Safety Report 6656134-4 (Version None)
Quarter: 2010Q1

REPORT INFORMATION
  Report Type: 
  Country: None (occurrence: None)
  Receive Date: 20100329
  Receipt Date: 20100322
  Transmission Date: 20100710
  Serious: Yes (Death)
  Sender: FDA-Public Use
  Company Number: D0066402A

PATIENT
  Sex: Male
  Weight: 83 kg

DRUGS (5)
  1. NELARABINE [Suspect]
     Indication: RECURRENT CANCER
     Dosage: 1500MGM2 PER DAY
     Route: 042
     Dates: start: 20091202
  2. IFOSFAMID [Suspect]
     Indication: RECURRENT CANCER
     Dosage: 800MGM2 PER DAY
     Route: 037
  3. DEXAMETHASONE [Concomitant]
     Route: 037
     Dates: start: 20100101
  4. METHOTREXATE [Concomitant]
     Route: 037
     Dates: start: 20100101
  5. CYTARABINE [Concomitant]
     Route: 037
     Dates: start: 20100101

REACTIONS (6)
  - CRANIAL NERVE DISORDER [None]
  - GUILLAIN-BARRE SYNDROME [None]
  - HYPOACUSIS [None]
  - MECHANICAL VENTILATION [None]
  - NECROSIS [None]
  - URINARY INCONTINENCE [None]
